FAERS Safety Report 6505836-9 (Version None)
Quarter: 2009Q4

REPORT INFORMATION
  Report Type: 
  Country: None (occurrence: None)
  Receive Date: 20091217
  Receipt Date: 20091217
  Transmission Date: 20100525
  Serious: No
  Sender: FDA-Public Use
  Company Number: None

PATIENT
  Sex: Male
  Weight: 69.8539 kg

DRUGS (1)
  1. ALENDRONATE SODIUM [Suspect]
     Indication: OSTEOPENIA
     Dosage: 70MG WEEKLY PO
     Route: 048
     Dates: start: 20060415, end: 20091216

REACTIONS (1)
  - OSTEONECROSIS [None]
